FAERS Safety Report 4478728-7 (Version None)
Quarter: 2004Q3

REPORT INFORMATION
  Report Type: 
  Country: None (occurrence: None)
  Receive Date: 20040923
  Receipt Date: 20040625
  Transmission Date: 20050211
  Serious: No
  Sender: FDA-Public Use
  Company Number: USA040465743

PATIENT
  Age: 77 Year
  Sex: Female
  Weight: 62 kg

DRUGS (13)
  1. FORTEO [Suspect]
     Indication: OSTEOPOROSIS
     Dosage: 20 UG/1 DAY
     Dates: start: 20040101
  2. QUININE [Concomitant]
  3. SINGULAIR (MONTELUKAST) [Concomitant]
  4. FEXOFENADINE HYDROCHLORIDE [Concomitant]
  5. ATROVENT [Concomitant]
  6. ALBUTEROL [Concomitant]
  7. OXYGEN [Concomitant]
  8. AVAPRO [Concomitant]
  9. PENTA-TRIAMTERENE HCTZ [Concomitant]
  10. ESTROGEN NOS [Concomitant]
  11. FORADIL [Concomitant]
  12. TRENTAL [Concomitant]
  13. HEMOCYTE PLUS [Concomitant]

REACTIONS (1)
  - ANAEMIA [None]
